FAERS Safety Report 6640052-1 (Version None)
Quarter: 2010Q1

REPORT INFORMATION
  Report Type: 
  Country: None (occurrence: None)
  Receive Date: 20100318
  Receipt Date: 20100305
  Transmission Date: 20100710
  Serious: Yes (Hospitalization, Other)
  Sender: FDA-Public Use
  Company Number: US-ELI_LILLY_AND_COMPANY-US200910003388

PATIENT
  Sex: Male

DRUGS (2)
  1. SYMBYAX [Suspect]
     Dosage: UNK, UNKNOWN
     Route: 065
  2. SYMBYAX [Suspect]
     Dosage: UNK, UNKNOWN
     Route: 065

REACTIONS (3)
  - DEPRESSION [None]
  - INTENTIONAL OVERDOSE [None]
  - SUICIDE ATTEMPT [None]
